FAERS Safety Report 21328861 (Version 1)
Quarter: 2022Q3

REPORT INFORMATION
  Report Type: Spontaneous
  Country: US (occurrence: US)
  Receive Date: 20220913
  Receipt Date: 20220913
  Transmission Date: 20221027
  Serious: Yes (Other)
  Sender: FDA-Public Use
  Company Number: US-PFIZER INC-PV202200060397

PATIENT

DRUGS (1)
  1. MINIPRESS [Interacting]
     Active Substance: PRAZOSIN HYDROCHLORIDE
     Dosage: UNK

REACTIONS (11)
  - Drug interaction [Unknown]
  - Pancreatic carcinoma [Unknown]
  - Bacteraemia [Unknown]
  - Cellulitis [Unknown]
  - Fall [Unknown]
  - Hypervolaemia [Unknown]
  - Hand deformity [Unknown]
  - Memory impairment [Unknown]
  - Oedema [Unknown]
  - Scoliosis [Unknown]
  - Anaemia [Unknown]
